FAERS Safety Report 9604576 (Version 1)
Quarter: 2013Q4

REPORT INFORMATION
  Report Type: Spontaneous
  Country: US (occurrence: US)
  Receive Date: 20131008
  Receipt Date: 20131008
  Transmission Date: 20140711
  Serious: No
  Sender: FDA-Public Use
  Company Number: US-BAYER-2013-121472

PATIENT
  Age: 18 Year
  Sex: Female
  Weight: 82 kg

DRUGS (1)
  1. ALEVE TABLET [Suspect]
     Dosage: 3 DF, ONCE
     Route: 048
     Dates: start: 20131005

REACTIONS (1)
  - Extra dose administered [None]
